FAERS Safety Report 23586289 (Version 1)
Quarter: 2024Q1

REPORT INFORMATION
  Report Type: Other
  Country: CA (occurrence: CA)
  Receive Date: 20240301
  Receipt Date: 20240301
  Transmission Date: 20240410
  Serious: Yes (Hospitalization)
  Sender: FDA-Public Use
  Company Number: CA-PFIZER INC-202400052364

PATIENT

DRUGS (1)
  1. CABERGOLINE [Suspect]
     Active Substance: CABERGOLINE
     Dosage: UNK
     Route: 048

REACTIONS (1)
  - Toxicity to various agents [Recovering/Resolving]
